FAERS Safety Report 12333247 (Version 1)
Quarter: 2016Q2

REPORT INFORMATION
  Report Type: Spontaneous
  Country: US (occurrence: US)
  Receive Date: 20160504
  Receipt Date: 20160504
  Transmission Date: 20160815
  Serious: No
  Sender: FDA-Public Use
  Company Number: US-ROCHE-1672570

PATIENT

DRUGS (1)
  1. ESBRIET [Suspect]
     Active Substance: PIRFENIDONE
     Indication: IDIOPATHIC PULMONARY FIBROSIS
     Dosage: START DATE  /APR/2015 OR MAY/2015
     Route: 065

REACTIONS (4)
  - Pruritus [Unknown]
  - Skin exfoliation [Unknown]
  - Insomnia [Unknown]
  - Dry skin [Unknown]
